FAERS Safety Report 9887354 (Version 2)
Quarter: 2014Q3

REPORT INFORMATION
  Report Type: Report from Study
  Country: US (occurrence: CA)
  Receive Date: 20140211
  Receipt Date: 20140908
  Transmission Date: 20150326
  Serious: Yes (Other)
  Sender: FDA-Public Use
  Company Number: CA-BRISTOL-MYERS SQUIBB COMPANY-20123188

PATIENT
  Age: 61 Year
  Sex: Female
  Weight: 65.76 kg

DRUGS (1)
  1. ORENCIA [Suspect]
     Active Substance: ABATACEPT
     Indication: RHEUMATOID ARTHRITIS
     Dosage: LAST DOSE ON 16JAN14?750ML
     Route: 042

REACTIONS (3)
  - Limb injury [Unknown]
  - Nasopharyngitis [Unknown]
  - Thermal burn [Unknown]
